FAERS Safety Report 4845840-X (Version None)
Quarter: 2005Q4

REPORT INFORMATION
  Report Type: 
  Country: None (occurrence: None)
  Receive Date: 20051206
  Receipt Date: 20050131
  Transmission Date: 20060501
  Serious: Yes (Hospitalization)
  Sender: FDA-Public Use
  Company Number: FR-GLAXOSMITHKLINE-B0370045A

PATIENT
  Sex: Female
  Weight: 2.9 kg

DRUGS (4)
  1. RETROVIR [Suspect]
     Indication: ANTIVIRAL PROPHYLAXIS
     Dosage: 60MG FOUR TIMES PER DAY
     Route: 048
     Dates: start: 20050114, end: 20050121
  2. RETROVIR [Suspect]
     Dates: start: 20050114, end: 20050114
  3. RETROVIR [Suspect]
     Indication: HIV INFECTION
  4. HIV TREATMENTS (UNSPECIFIED) [Concomitant]
     Indication: HIV INFECTION

REACTIONS (4)
  - ACCIDENTAL OVERDOSE [None]
  - ANAEMIA [None]
  - DRUG EXPOSURE DURING PREGNANCY [None]
  - NO ADVERSE DRUG EFFECT [None]
